FAERS Safety Report 7244523-9 (Version None)
Quarter: 2011Q1

REPORT INFORMATION
  Report Type: 
  Country: None (occurrence: None)
  Receive Date: 20110125
  Receipt Date: 20110118
  Transmission Date: 20110831
  Serious: Yes (Hospitalization)
  Sender: FDA-Public Use
  Company Number: DE-ELI_LILLY_AND_COMPANY-DE201101004340

PATIENT
  Sex: Female

DRUGS (9)
  1. AMOCLAV [Concomitant]
     Dosage: 1 D/F, UNK
  2. MAGNESIUM VERLA /02088501/ [Concomitant]
  3. BYETTA [Suspect]
     Indication: TYPE 2 DIABETES MELLITUS
     Dosage: 5 UG, 2/D
     Route: 058
     Dates: start: 20101201
  4. METFORMIN HCL [Concomitant]
     Dosage: 850 MG, UNK
  5. EUTHYROX [Concomitant]
     Dosage: 1 D/F, UNK
  6. ENAHEXAL                           /00574902/ [Concomitant]
     Dosage: 1 D/F, UNK
  7. PANTOZOL [Concomitant]
     Dosage: 1 D/F, UNK
  8. VALORON [Concomitant]
  9. CLEXANE [Concomitant]
     Dosage: 1 D/F, UNK

REACTIONS (1)
  - LOWER LIMB FRACTURE [None]
